FAERS Safety Report 8185349-1 (Version None)
Quarter: 2012Q1

REPORT INFORMATION
  Report Type: 
  Country: None (occurrence: None)
  Receive Date: 20120305
  Receipt Date: 20120228
  Transmission Date: 20120608
  Serious: Yes (Hospitalization, Other)
  Sender: FDA-Public Use
  Company Number: PHHY2012BR018544

PATIENT
  Sex: Female

DRUGS (4)
  1. DIOVAN [Suspect]
     Dosage: 2 DF (80 MG), PER DAY
  2. GALVUS [Suspect]
     Dosage: 2 DF (50 MG), PER DAY
  3. DIOVAN [Suspect]
     Dosage: 80 MG, UNK
  4. GALVUS [Suspect]
     Dosage: 50 MG, UNK

REACTIONS (1)
  - PULMONARY OEDEMA [None]
